FAERS Safety Report 8501187-1 (Version None)
Quarter: 2012Q3

REPORT INFORMATION
  Report Type: 
  Country: None (occurrence: None)
  Receive Date: 20120710
  Receipt Date: 20120704
  Transmission Date: 20120928
  Serious: Yes (Other)
  Sender: FDA-Public Use
  Company Number: JP-SANOFI-AVENTIS-2012SA048019

PATIENT
  Age: 63 Year
  Sex: Male

DRUGS (12)
  1. FLUOROURACIL [Suspect]
     Dosage: FROM DAYS 1 TO 5 OF THE CYCLE
     Route: 065
     Dates: start: 20110101
  2. FLUOROURACIL [Suspect]
     Dosage: FROM DAYS 1 TO 5 OF THE CYCLE
     Route: 065
  3. CISPLATIN [Suspect]
     Dosage: ADMINISTERED ON DAY 1 OF THE CYCLE
     Route: 065
  4. DOCETAXEL [Suspect]
     Route: 065
     Dates: start: 20110401
  5. FLUOROURACIL [Suspect]
     Dosage: FROM DAYS 1 TO 5 OF THE CYCLE
     Route: 065
  6. FLUOROURACIL [Suspect]
     Dosage: FROM DAYS 1 TO 5 OF THE CYCLE
     Route: 065
     Dates: start: 20110101
  7. FLUOROURACIL [Suspect]
     Dosage: FROM DAYS 1 TO 5 OF THE CYCLE
     Route: 065
     Dates: start: 20110101
  8. NEDAPLATIN [Suspect]
     Dosage: ADMINISTERED ON DAY 6 OF THE CYCLE
     Route: 065
     Dates: start: 20110101
  9. THERAPEUTIC RADIOPHARMACEUTICALS [Concomitant]
     Dosage: 50 GY/25 FR
  10. FLUOROURACIL [Suspect]
     Dosage: FROM DAYS 1 TO 5 OF THE CYCLE
     Route: 065
  11. NEDAPLATIN [Suspect]
     Dosage: ADMINISTERED ON DAY 6 OF THE CYCLE
     Route: 065
     Dates: start: 20110101
  12. NEDAPLATIN [Suspect]
     Dosage: ADMINISTERED ON DAY 6 OF THE CYCLE
     Route: 065
     Dates: start: 20110101

REACTIONS (9)
  - RENAL SALT-WASTING SYNDROME [None]
  - INAPPROPRIATE ANTIDIURETIC HORMONE SECRETION [None]
  - DEHYDRATION [None]
  - ALTERED STATE OF CONSCIOUSNESS [None]
  - BLOOD ANTIDIURETIC HORMONE INCREASED [None]
  - HYPONATRAEMIA [None]
  - SOMNOLENCE [None]
  - URINE SODIUM INCREASED [None]
  - MALAISE [None]
